FAERS Safety Report 24687621 (Version 1)
Quarter: 2024Q4

REPORT INFORMATION
  Report Type: Spontaneous
  Country: RU (occurrence: RU)
  Receive Date: 20241202
  Receipt Date: 20241202
  Transmission Date: 20250115
  Serious: Yes (Other)
  Sender: MYLAN
  Company Number: RU-MYLANLABS-2024M1106724

PATIENT
  Sex: Female

DRUGS (1)
  1. NEURONTIN [Suspect]
     Active Substance: GABAPENTIN
     Indication: Neuralgia
     Dosage: UNK, QD (1/6 OF A NEURONTIN TABLET AT NIGHT)
     Route: 065

REACTIONS (4)
  - Syncope [Unknown]
  - Feeling abnormal [Unknown]
  - Photopsia [Unknown]
  - Wrong technique in product usage process [Unknown]
